FAERS Safety Report 13305505 (Version 1)
Quarter: 2017Q1

REPORT INFORMATION
  Report Type: Spontaneous
  Country: SE (occurrence: SE)
  Receive Date: 20170308
  Receipt Date: 20170308
  Transmission Date: 20170428
  Serious: Yes (Disabling)
  Sender: FDA-Public Use
  Company Number: SE-GLAXOSMITHKLINE-SE2017031461

PATIENT
  Sex: Female

DRUGS (3)
  1. FLUTIDE EVOHALER [Suspect]
     Active Substance: FLUTICASONE PROPIONATE
     Indication: ASTHMA
     Dosage: DURING WINTER 1 INHALATION PER DAY HOWEVER OFTEN A MAXIMUM DOSE OF 2X2 INHALATIONS PER DAY
     Route: 065
     Dates: start: 201205
  2. AIROMIR [Concomitant]
     Active Substance: ALBUTEROL SULFATE
     Dosage: UNK
  3. SINGULAIR [Concomitant]
     Active Substance: MONTELUKAST SODIUM
     Dosage: UNK
     Route: 065

REACTIONS (1)
  - Dental caries [Not Recovered/Not Resolved]
